FAERS Safety Report 8818358 (Version 1)
Quarter: 2012Q4

REPORT INFORMATION
  Report Type: 
  Country: US (occurrence: US)
  Receive Date: 20121001
  Receipt Date: 20121001
  Transmission Date: 20130627
  Serious: Yes (Hospitalization, Other)
  Sender: FDA-Public Use
  Company Number: US-ROCHE-1072456

PATIENT
  Age: 30 None
  Sex: Male
  Weight: 72.19 kg

DRUGS (2)
  1. ACCUTANE [Suspect]
     Indication: PRODUCT USED FOR UNKNOWN INDICATION
     Dosage: 40 mg in morning and 20 mg at night
     Route: 048
     Dates: start: 19980819, end: 19981229
  2. ACCUTANE [Suspect]
     Route: 065
     Dates: start: 199901, end: 199904

REACTIONS (8)
  - Crohn^s disease [Unknown]
  - Small intestinal obstruction [Unknown]
  - Inflammatory bowel disease [Unknown]
  - Suicidal ideation [Unknown]
  - Depression [Unknown]
  - Lip dry [Unknown]
  - Dry skin [Unknown]
  - Irritable bowel syndrome [Unknown]
